FAERS Safety Report 15093670 (Version 3)
Quarter: 2019Q4

REPORT INFORMATION
  Report Type: Spontaneous
  Country: GB (occurrence: GB)
  Receive Date: 20180629
  Receipt Date: 20191121
  Transmission Date: 20200122
  Serious: Yes (Other)
  Sender: FDA-Public Use
  Company Number: GB-009507513-1806GBR011736

PATIENT
  Age: 49 Year
  Sex: Female
  Weight: 58.96 kg

DRUGS (8)
  1. MAGNESIUM OXIDE. [Concomitant]
     Active Substance: MAGNESIUM OXIDE
     Dosage: UNK
  2. IBUPROFEN. [Concomitant]
     Active Substance: IBUPROFEN
     Dosage: UNK
  3. IBUPROFEN LYSINE. [Concomitant]
     Active Substance: IBUPROFEN LYSINE
     Dosage: UNK
  4. RIZATRIPTAN BENZOATE. [Suspect]
     Active Substance: RIZATRIPTAN BENZOATE
     Indication: MIGRAINE
     Dosage: 10 MG, UNK
     Route: 048
     Dates: start: 20180528, end: 20180528
  5. AMITRIPTYLINE HYDROCHLORIDE. [Concomitant]
     Active Substance: AMITRIPTYLINE HYDROCHLORIDE
     Dosage: UNK
  6. CERAZETTE [Concomitant]
     Dosage: UNK
  7. RIBOFLAVIN [Concomitant]
     Active Substance: RIBOFLAVIN
     Dosage: UNK
  8. FROVATRIPTAN. [Concomitant]
     Active Substance: FROVATRIPTAN
     Dosage: UNK

REACTIONS (3)
  - Anxiety [Recovered/Resolved with Sequelae]
  - Depression [Recovered/Resolved with Sequelae]
  - Mood altered [Recovered/Resolved with Sequelae]

NARRATIVE: CASE EVENT DATE: 20180528
